FAERS Safety Report 25032517 (Version 5)
Quarter: 2025Q4

REPORT INFORMATION
  Report Type: Spontaneous
  Country: US (occurrence: None)
  Receive Date: 20250303
  Receipt Date: 20251023
  Transmission Date: 20260117
  Serious: No
  Sender: UCB
  Company Number: US-UCBSA-2024066761

PATIENT
  Weight: 125 kg

DRUGS (2)
  1. RYSTIGGO [Suspect]
     Active Substance: ROZANOLIXIZUMAB-NOLI
     Indication: Myasthenia gravis
     Dosage: UNK
  2. ZILBRYSQ [Suspect]
     Active Substance: ZILUCOPLAN
     Indication: Product used for unknown indication
     Dosage: UNK

REACTIONS (2)
  - Illness [Recovered/Resolved]
  - Device defective [Unknown]
